FAERS Safety Report 10061121 (Version 1)
Quarter: 2014Q2

REPORT INFORMATION
  Report Type: Spontaneous
  Country: FR (occurrence: FR)
  Receive Date: 20140406
  Receipt Date: 20140406
  Transmission Date: 20141212
  Serious: Yes (Hospitalization)
  Sender: FDA-Public Use
  Company Number: FR-US-EMD SERONO, INC.-7278952

PATIENT
  Age: 30 Year
  Sex: Female

DRUGS (3)
  1. GONAL-F [Suspect]
     Indication: IN VITRO FERTILISATION
     Route: 058
     Dates: start: 20140201, end: 20140209
  2. OVITRELLE [Suspect]
     Indication: IN VITRO FERTILISATION
     Route: 058
     Dates: start: 20140210, end: 20140210
  3. DECAPEPTYL                         /00486501/ [Suspect]
     Indication: IN VITRO FERTILISATION
     Route: 058
     Dates: start: 20140115, end: 20140209

REACTIONS (2)
  - Ovarian hyperstimulation syndrome [Recovered/Resolved]
  - Ascites [Recovered/Resolved]
